FAERS Safety Report 24353777 (Version 2)
Quarter: 2025Q2

REPORT INFORMATION
  Report Type: Spontaneous
  Country: US (occurrence: US)
  Receive Date: 20240923
  Receipt Date: 20250607
  Transmission Date: 20250717
  Serious: No
  Sender: STEMLINE THERAPEUTICS
  Company Number: US-Stemline Therapeutics, Inc.-2023ST002214

PATIENT
  Age: 66 Year
  Sex: Female

DRUGS (4)
  1. ORSERDU [Suspect]
     Active Substance: ELACESTRANT
     Indication: Product used for unknown indication
     Dates: start: 202306, end: 202407
  2. ORSERDU [Suspect]
     Active Substance: ELACESTRANT
     Dates: start: 20230701
  3. ORSERDU [Suspect]
     Active Substance: ELACESTRANT
  4. ORSERDU [Suspect]
     Active Substance: ELACESTRANT
     Dates: start: 202306

REACTIONS (6)
  - Skin lesion [Unknown]
  - Arthralgia [Unknown]
  - Vomiting [Not Recovered/Not Resolved]
  - Nausea [Not Recovered/Not Resolved]
  - Pain in extremity [Unknown]
  - Drug ineffective [Unknown]

NARRATIVE: CASE EVENT DATE: 20230725
